FAERS Safety Report 5710496-0 (Version None)
Quarter: 2008Q2

REPORT INFORMATION
  Report Type: 
  Country: None (occurrence: None)
  Receive Date: 20080414
  Receipt Date: 20080403
  Transmission Date: 20081010
  Serious: Yes (Other)
  Sender: FDA-Public Use
  Company Number: 2007SP006281

PATIENT

DRUGS (2)
  1. TEMODAL (TEMOZOLOMIDE) (TEMOZOLOMIDE) [Suspect]
     Indication: MALIGNANT MELANOMA
     Dosage: 200 MG/M2; QD; PO
     Route: 048
  2. PEG-INTRON [Suspect]
     Indication: MALIGNANT MELANOMA
     Dosage: 100 MCG;QW;SC
     Route: 058

REACTIONS (1)
  - SARCOIDOSIS [None]
